FAERS Safety Report 13894317 (Version 1)
Quarter: 2017Q3

REPORT INFORMATION
  Report Type: Spontaneous
  Country: US (occurrence: None)
  Receive Date: 20170817
  Receipt Date: 20170817
  Transmission Date: 20171127
  Serious: Yes (Hospitalization)
  Sender: FDA-Public Use
  Company Number: None

PATIENT
  Age: 72 Year
  Sex: Female
  Weight: 45.8 kg

DRUGS (1)
  1. MEMANTINE HYDROCHLORIDE (102290) [Suspect]
     Active Substance: MEMANTINE HYDROCHLORIDE
     Dates: end: 20170630

REACTIONS (3)
  - Facial paralysis [None]
  - Cerebrovascular accident [None]
  - Aphasia [None]

NARRATIVE: CASE EVENT DATE: 20170524
